FAERS Safety Report 5226396-9 (Version None)
Quarter: 2007Q1

REPORT INFORMATION
  Report Type: 
  Country: None (occurrence: None)
  Receive Date: 20070201
  Receipt Date: 20070123
  Transmission Date: 20070707
  Serious: Yes (Other)
  Sender: FDA-Public Use
  Company Number: JP-PFIZER INC-2006145584

PATIENT
  Age: 55 Year
  Sex: Female

DRUGS (5)
  1. SOLU-MEDROL [Suspect]
     Indication: OPTIC NEURITIS RETROBULBAR
     Dosage: DAILY DOSE:1GRAM
     Route: 042
  2. ALENDRONATE SODIUM [Suspect]
     Indication: OSTEOPOROSIS
     Dosage: DAILY DOSE:5MG
     Route: 048
     Dates: start: 20060210, end: 20060319
  3. FAMOTIDINE [Concomitant]
     Indication: GASTRIC ULCER
     Dosage: DAILY DOSE:5MG
     Route: 048
     Dates: start: 20060210, end: 20060319
  4. FAMOTIDINE [Concomitant]
     Indication: OSTEOPOROSIS
  5. REBAMIPIDE [Concomitant]
     Route: 048
     Dates: start: 20060301

REACTIONS (1)
  - LIVER DISORDER [None]
